FAERS Safety Report 8760975 (Version 3)
Quarter: 2013Q4

REPORT INFORMATION
  Report Type: Report from Study
  Country: US (occurrence: US)
  Receive Date: 20120830
  Receipt Date: 20131031
  Transmission Date: 20140711
  Serious: Yes (Other)
  Sender: FDA-Public Use
  Company Number: US-009507513-1112USA01344

PATIENT
  Age: 74 Year
  Sex: Female
  Weight: 56.69 kg

DRUGS (11)
  1. DECADRON TABLETS [Suspect]
     Indication: PLASMA CELL MYELOMA
     Dosage: 4 MG, QW
     Route: 048
     Dates: start: 20111208, end: 20120423
  2. REVLIMID [Suspect]
     Indication: PLASMA CELL MYELOMA
     Dosage: 25 MG, QD
     Route: 048
     Dates: start: 20111112, end: 20111123
  3. ASPIRIN [Concomitant]
  4. PLAVIX [Concomitant]
  5. LEVOTHYROXINE SODIUM [Concomitant]
  6. PRINIVIL [Concomitant]
     Route: 048
  7. NITROGLYCERIN [Concomitant]
  8. PRILOSEC [Concomitant]
  9. ZOCOR [Concomitant]
     Route: 048
  10. SPIRONOLACTONE [Concomitant]
  11. TORSEMIDE [Concomitant]

REACTIONS (3)
  - Gastritis [Unknown]
  - Gastrointestinal haemorrhage [Unknown]
  - Haemoglobin decreased [Unknown]
